FAERS Safety Report 9228828 (Version 2)
Quarter: 2013Q2

REPORT INFORMATION
  Report Type: Spontaneous
  Country: US (occurrence: US)
  Receive Date: 20130412
  Receipt Date: 20130508
  Transmission Date: 20140414
  Serious: No
  Sender: FDA-Public Use
  Company Number: US-B.I. PHARMACEUTICALS,INC./RIDGEFIELD-2013-BI-08920BP

PATIENT
  Age: 81 Year
  Sex: Male
  Weight: 150 kg

DRUGS (8)
  1. PRADAXA [Suspect]
     Indication: ATRIAL FIBRILLATION
     Dosage: 150 MG
     Route: 048
     Dates: start: 20121115, end: 20130413
  2. TYLENOL [Suspect]
     Indication: PAIN
  3. SPIRONOLACTONE [Concomitant]
     Dosage: 25 MG
     Route: 048
  4. LINSONOPRIL [Concomitant]
     Indication: BLOOD PRESSURE
     Dosage: 5 MG
     Route: 048
  5. LANTUS [Concomitant]
     Indication: DIABETES MELLITUS
  6. TORSEMIDE [Concomitant]
  7. SIMVASTATIN [Concomitant]
     Indication: BLOOD CHOLESTEROL INCREASED
  8. LEVOTHYROINE [Concomitant]
     Indication: HYPOTHYROIDISM
     Dosage: 125 MCG
     Route: 048

REACTIONS (2)
  - Myalgia [Not Recovered/Not Resolved]
  - Rectal haemorrhage [Recovered/Resolved]
